FAERS Safety Report 10810269 (Version 1)
Quarter: 2015Q1

REPORT INFORMATION
  Report Type: Report from Study
  Country: US (occurrence: US)
  Receive Date: 20150217
  Receipt Date: 20150217
  Transmission Date: 20150721
  Serious: No
  Sender: FDA-Public Use
  Company Number: US-ABBVIE-14K-163-1211986-00

PATIENT
  Sex: Female

DRUGS (3)
  1. UNKNOWN CREAM [Suspect]
     Active Substance: UNSPECIFIED INGREDIENT
     Indication: TINEA INFECTION
  2. UNKNOWN CREAM [Suspect]
     Active Substance: UNSPECIFIED INGREDIENT
     Indication: TINEA INFECTION
  3. HUMIRA [Suspect]
     Active Substance: ADALIMUMAB
     Indication: ANKYLOSING SPONDYLITIS

REACTIONS (2)
  - Drug ineffective [Unknown]
  - Tinea infection [Recovered/Resolved]
